FAERS Safety Report 17575484 (Version 1)
Quarter: 2020Q1

REPORT INFORMATION
  Report Type: Spontaneous
  Country: IT (occurrence: IT)
  Receive Date: 20200324
  Receipt Date: 20200324
  Transmission Date: 20200409
  Serious: Yes (Other)
  Sender: FDA-Public Use
  Company Number: IT-AUROBINDO-AUR-APL-2020-014966

PATIENT
  Age: 66 Year
  Sex: Male

DRUGS (2)
  1. CARBOPLATIN. [Suspect]
     Active Substance: CARBOPLATIN
     Indication: LUNG ADENOCARCINOMA
     Dosage: 350 MILLIGRAM, CYCLICAL
     Route: 042
     Dates: start: 20191119
  2. VINORELBINE [Suspect]
     Active Substance: VINORELBINE TARTRATE
     Indication: LUNG ADENOCARCINOMA
     Dosage: 100 MILLIGRAM, CYCLICAL
     Route: 042
     Dates: start: 20191119

REACTIONS (1)
  - Hypercreatinaemia [Recovering/Resolving]

NARRATIVE: CASE EVENT DATE: 20191213
